FAERS Safety Report 7319636-3 (Version None)
Quarter: 2011Q1

REPORT INFORMATION
  Report Type: 
  Country: None (occurrence: None)
  Receive Date: 20110228
  Receipt Date: 20100615
  Transmission Date: 20110831
  Serious: No
  Sender: FDA-Public Use
  Company Number: A0866864A

PATIENT
  Age: 52 Year
  Sex: Female

DRUGS (2)
  1. LAMICTAL [Suspect]
     Indication: DEPRESSION
     Dates: start: 20090812, end: 20090914
  2. LAMOTRIGINE [Suspect]
     Indication: DEPRESSION
     Dates: start: 20090914

REACTIONS (1)
  - ALOPECIA [None]
